FAERS Safety Report 7391967-0 (Version None)
Quarter: 2011Q2

REPORT INFORMATION
  Report Type: 
  Country: None (occurrence: None)
  Receive Date: 20110404
  Receipt Date: 20110329
  Transmission Date: 20111010
  Serious: Yes (Death, Hospitalization)
  Sender: FDA-Public Use
  Company Number: US-TEVA-271426USA

PATIENT
  Sex: Male
  Weight: 69.462 kg

DRUGS (16)
  1. INVESTIGATIONAL DRUG [Suspect]
     Indication: HEAD AND NECK CANCER
     Route: 042
     Dates: start: 20110301, end: 20110301
  2. LEFLUNOMIDE [Concomitant]
     Dates: start: 20090508
  3. PREDNISONE [Concomitant]
     Dates: start: 20090508
  4. DIPHENHYDRAMINE HYDROCHLORIDE [Concomitant]
     Dates: start: 20110301
  5. PALONOSETRON HYDROCHLORIDE [Concomitant]
     Dates: start: 20110301
  6. ONDANSETRON [Concomitant]
     Dates: start: 20110301
  7. FLUOROURACIL [Suspect]
     Indication: HEAD AND NECK CANCER
     Route: 042
     Dates: start: 20110301, end: 20110304
  8. FOLIC ACID [Concomitant]
     Dates: start: 20080527
  9. DEXAMETHASONE [Concomitant]
     Dates: start: 20110301
  10. HYDROMORPHONE HCL [Concomitant]
     Dates: start: 20110225
  11. PROCHLORPERAZINE EDISYLATE [Concomitant]
     Dates: start: 20110301
  12. WARFARIN SODIUM [Concomitant]
     Dates: start: 20100624
  13. SANCUSO [Concomitant]
     Route: 062
     Dates: start: 20110301
  14. RANITIDINE HYDROCHLORIDE [Concomitant]
     Dates: start: 20110301
  15. ESCITALOPRAM OXALATE [Concomitant]
     Dates: start: 20090318
  16. CISPLATIN [Suspect]
     Indication: HEAD AND NECK CANCER
     Route: 042
     Dates: start: 20110301, end: 20110301

REACTIONS (3)
  - RESPIRATORY DISTRESS [None]
  - DISEASE PROGRESSION [None]
  - HYPOXIA [None]
